FAERS Safety Report 15131152 (Version 1)
Quarter: 2018Q3

REPORT INFORMATION
  Report Type: Spontaneous
  Country: SE (occurrence: SE)
  Receive Date: 20180711
  Receipt Date: 20180711
  Transmission Date: 20181010
  Serious: No
  Sender: FDA-Public Use
  Company Number: SE-B. BRAUN MEDICAL INC.-2051754

PATIENT
  Age: 78 Year
  Sex: Female

DRUGS (3)
  1. ACLASTA [Suspect]
     Active Substance: ZOLEDRONIC ACID
  2. SODIUM CHLORIDE INJECTION USP 0264?7800?09 [Suspect]
     Active Substance: SODIUM CHLORIDE
     Dates: start: 20170223, end: 20170223
  3. ACLASTA [Suspect]
     Active Substance: ZOLEDRONIC ACID
     Dates: start: 20170223, end: 20170223

REACTIONS (9)
  - Bone pain [Recovered/Resolved with Sequelae]
  - Pain [Recovered/Resolved with Sequelae]
  - Pruritus [Recovered/Resolved with Sequelae]
  - Arthralgia [Recovered/Resolved with Sequelae]
  - Chills [Recovered/Resolved with Sequelae]
  - Tremor [Recovered/Resolved with Sequelae]
  - Hyperhidrosis [Recovered/Resolved with Sequelae]
  - Myalgia [Recovered/Resolved with Sequelae]
  - Rash [Recovered/Resolved with Sequelae]

NARRATIVE: CASE EVENT DATE: 20170223
